FAERS Safety Report 5489417-4 (Version None)
Quarter: 2007Q4

REPORT INFORMATION
  Report Type: 
  Country: None (occurrence: None)
  Receive Date: 20071018
  Receipt Date: 20071011
  Transmission Date: 20080405
  Serious: No
  Sender: FDA-Public Use
  Company Number: NL-ELI_LILLY_AND_COMPANY-NL200710003099

PATIENT
  Sex: Male

DRUGS (8)
  1. CIALIS [Suspect]
     Dosage: 20 MG, UNK
     Route: 065
     Dates: start: 20071001
  2. ALFUZOSIN HCL [Concomitant]
  3. RABEPRAZOLE SODIUM [Concomitant]
  4. PANCREASE [Concomitant]
  5. INSULIN [Concomitant]
  6. IRBESARTAN [Concomitant]
  7. VIAGRA [Concomitant]
  8. LANTUS [Concomitant]

REACTIONS (3)
  - BACK PAIN [None]
  - INTRAOCULAR PRESSURE INCREASED [None]
  - MYALGIA [None]
